FAERS Safety Report 6053938-6 (Version None)
Quarter: 2009Q1

REPORT INFORMATION
  Report Type: 
  Country: None (occurrence: None)
  Receive Date: 20090127
  Receipt Date: 20090120
  Transmission Date: 20090719
  Serious: No
  Sender: FDA-Public Use
  Company Number: JP-EISAI MEDIAL RESEARCH-E3810-02496-CLI-JP

PATIENT
  Sex: Female

DRUGS (1)
  1. PARIET [Suspect]
     Indication: REFLUX OESOPHAGITIS
     Route: 048
     Dates: start: 20081225, end: 20081228

REACTIONS (1)
  - DYSPHONIA [None]
